FAERS Safety Report 9468419 (Version 1)
Quarter: 2013Q3

REPORT INFORMATION
  Report Type: Spontaneous
  Country: US (occurrence: US)
  Receive Date: 20130821
  Receipt Date: 20130821
  Transmission Date: 20140515
  Serious: Yes (Other)
  Sender: FDA-Public Use
  Company Number: US-PFIZER INC-2013238382

PATIENT
  Sex: Female

DRUGS (2)
  1. TYGACIL [Suspect]
     Dosage: 50 MG, 2X/DAY
     Dates: end: 201308
  2. LASIX [Concomitant]
     Dosage: UNK

REACTIONS (1)
  - Pancreatitis [Unknown]
